FAERS Safety Report 5578807-7 (Version None)
Quarter: 2007Q4

REPORT INFORMATION
  Report Type: 
  Country: None (occurrence: None)
  Receive Date: 20071228
  Receipt Date: 20071228
  Transmission Date: 20080405
  Serious: Yes (Hospitalization)
  Sender: FDA-Public Use
  Company Number: None

PATIENT
  Age: 39 Year
  Sex: Male
  Weight: 99.7913 kg

DRUGS (6)
  1. CISPLATIN 33MG/M2 X 3 DAYS WEEKS 1 AMD 5 [Suspect]
     Indication: NEOPLASM MALIGNANT
     Dosage: 72 MG X 3 DAYS
     Dates: start: 20071126
  2. CISPLATIN 33MG/M2 X 3 DAYS WEEKS 1 AMD 5 [Suspect]
     Indication: NEOPLASM MALIGNANT
     Dosage: 72 MG X 3 DAYS
     Dates: start: 20071127
  3. CISPLATIN 33MG/M2 X 3 DAYS WEEKS 1 AMD 5 [Suspect]
     Indication: NEOPLASM MALIGNANT
     Dosage: 72 MG X 3 DAYS
     Dates: start: 20071128
  4. BEVACIZUMAB 10 MG/KG WEEKS 1,3,5,7 [Suspect]
     Indication: NEOPLASM MALIGNANT
     Dosage: 1,068 MG
     Dates: start: 20071126
  5. BEVACIZUMAB 10 MG/KG WEEKS 1,3,5,7 [Suspect]
     Indication: NEOPLASM MALIGNANT
     Dosage: 1,068 MG
     Dates: start: 20071210
  6. TARCEVA [Concomitant]

REACTIONS (7)
  - CANDIDIASIS [None]
  - CONTRAINDICATION TO MEDICAL TREATMENT [None]
  - COUGH [None]
  - DECREASED APPETITE [None]
  - FEBRILE NEUTROPENIA [None]
  - INCREASED UPPER AIRWAY SECRETION [None]
  - MUCOSAL INFLAMMATION [None]
